FAERS Safety Report 6440439-6 (Version None)
Quarter: 2009Q4

REPORT INFORMATION
  Report Type: 
  Country: None (occurrence: None)
  Receive Date: 20091113
  Receipt Date: 20091103
  Transmission Date: 20100525
  Serious: Yes (Other)
  Sender: FDA-Public Use
  Company Number: US-PFIZER INC-2009296944

PATIENT
  Sex: Male
  Weight: 74.8 kg

DRUGS (3)
  1. GEODON [Suspect]
     Indication: SCHIZOPHRENIA
     Dosage: 80 MG, 1X/DAY
     Route: 048
     Dates: start: 20091028
  2. ADDERALL 10 [Suspect]
     Route: 048
  3. KLONOPIN [Concomitant]
     Route: 048

REACTIONS (5)
  - DELUSION [None]
  - DRUG INTOLERANCE [None]
  - PSYCHOMOTOR HYPERACTIVITY [None]
  - PSYCHOTIC DISORDER [None]
  - SEDATION [None]
